FAERS Safety Report 23164188 (Version 1)
Quarter: 2023Q4

REPORT INFORMATION
  Report Type: Spontaneous
  Country: US (occurrence: None)
  Receive Date: 20231107
  Receipt Date: 20231107
  Transmission Date: 20240110
  Serious: No
  Sender: FDA-Public Use
  Company Number: None

PATIENT
  Sex: Male

DRUGS (1)
  1. HUMIRA [Suspect]
     Active Substance: ADALIMUMAB
     Indication: Inflammatory bowel disease
     Dosage: FREQUENCY : EVERY OTHER WEEK;?
     Route: 058
     Dates: start: 202202

REACTIONS (6)
  - Loss of therapeutic response [None]
  - Therapeutic product effect decreased [None]
  - Diverticulitis [None]
  - Gastrointestinal perforation [None]
  - Therapy interrupted [None]
  - Clostridium difficile infection [None]
